FAERS Safety Report 24383924 (Version 2)
Quarter: 2024Q4

REPORT INFORMATION
  Report Type: Spontaneous
  Country: FR (occurrence: FR)
  Receive Date: 20241001
  Receipt Date: 20241030
  Transmission Date: 20250115
  Serious: Yes (Hospitalization)
  Sender: ROCHE
  Company Number: None

PATIENT
  Age: 55 Year
  Sex: Male

DRUGS (2)
  1. CELLCEPT [Suspect]
     Active Substance: MYCOPHENOLATE MOFETIL
     Indication: Sarcoidosis
     Dosage: 3000 MG/1 J
     Route: 050
  2. OFEV [Suspect]
     Active Substance: NINTEDANIB
     Indication: Sarcoidosis
     Dosage: 200 MG/1 J
     Route: 050
     Dates: start: 20230801

REACTIONS (2)
  - Pulmonary embolism [Recovered/Resolved]
  - Off label use [Unknown]

NARRATIVE: CASE EVENT DATE: 20240819
